FAERS Safety Report 24612139 (Version 1)
Quarter: 2024Q4

REPORT INFORMATION
  Report Type: Spontaneous
  Country: US (occurrence: US)
  Receive Date: 20241113
  Receipt Date: 20241113
  Transmission Date: 20250114
  Serious: No
  Sender: NOVARTIS
  Company Number: US-002147023-NVSC2024US218585

PATIENT
  Sex: Female
  Weight: 56.24 kg

DRUGS (1)
  1. TABRECTA [Suspect]
     Active Substance: CAPMATINIB
     Indication: Lung neoplasm malignant
     Dosage: 2 DOSAGE FORM, BID (400 MG)
     Route: 048
     Dates: start: 20240709

REACTIONS (1)
  - Oedema peripheral [Unknown]
